FAERS Safety Report 15102527 (Version 2)
Quarter: 2018Q3

REPORT INFORMATION
  Report Type: Report from Study
  Country: US (occurrence: US)
  Receive Date: 20180703
  Receipt Date: 20180828
  Transmission Date: 20181010
  Serious: No
  Sender: FDA-Public Use
  Company Number: US-SA-2018SA067930

PATIENT
  Age: 39 Year
  Sex: Male

DRUGS (2)
  1. AGALSIDASE BETA [Suspect]
     Active Substance: AGALSIDASE BETA
     Indication: FABRY^S DISEASE
     Dosage: 5 UNK, FREQUENCY: Q2
     Route: 041
     Dates: start: 20090913
  2. AGALSIDASE BETA [Suspect]
     Active Substance: AGALSIDASE BETA
     Dosage: 70 MG, QOW
     Route: 041
     Dates: start: 20160316

REACTIONS (5)
  - Rash [Unknown]
  - Hypoacusis [Not Recovered/Not Resolved]
  - Infusion related reaction [Unknown]
  - Treatment noncompliance [Unknown]
  - Balance disorder [Recovering/Resolving]

NARRATIVE: CASE EVENT DATE: 20171010
